FAERS Safety Report 5019481-8 (Version None)
Quarter: 2006Q2

REPORT INFORMATION
  Report Type: 
  Country: None (occurrence: None)
  Receive Date: 20060530
  Receipt Date: 20060520
  Transmission Date: 20061013
  Serious: Yes (Death)
  Sender: FDA-Public Use
  Company Number: 219424

PATIENT
  Age: 19 Year
  Sex: Male

DRUGS (2)
  1. NUTROPIN AQ [Suspect]
     Dates: start: 20020801, end: 20030801
  2. NUTROPIN AQ [Suspect]
     Dates: start: 20040401, end: 20051002

REACTIONS (2)
  - RECURRENT CANCER [None]
  - RHABDOMYOSARCOMA [None]
